FAERS Safety Report 7179919-7 (Version None)
Quarter: 2010Q4

REPORT INFORMATION
  Report Type: 
  Country: None (occurrence: None)
  Receive Date: 20101208
  Receipt Date: 20101122
  Transmission Date: 20110411
  Serious: Yes (Hospitalization, Other)
  Sender: FDA-Public Use
  Company Number: JPI-P-012719

PATIENT
  Age: 68 Year
  Sex: Male
  Weight: 81.6475 kg

DRUGS (2)
  1. XYREM [Suspect]
     Indication: CATAPLEXY
     Dosage: 3 GM (1.5 GM,2 IN 1 D),ORAL ; 4.5 GM (2.25 GM,1 IN 1 D),ORAL
     Route: 048
     Dates: start: 20081208
  2. INSULIN [Concomitant]

REACTIONS (8)
  - CERVICAL VERTEBRAL FRACTURE [None]
  - FALL [None]
  - GAIT DISTURBANCE [None]
  - HAEMORRHAGE [None]
  - HEAD INJURY [None]
  - MYOCARDIAL INFARCTION [None]
  - PRURITUS [None]
  - RASH MACULO-PAPULAR [None]
